FAERS Safety Report 12382265 (Version 1)
Quarter: 2016Q2

REPORT INFORMATION
  Report Type: Spontaneous
  Country: US (occurrence: US)
  Receive Date: 20160518
  Receipt Date: 20160518
  Transmission Date: 20160815
  Serious: No
  Sender: FDA-Public Use
  Company Number: US-BAYER-2016-095181

PATIENT
  Age: 81 Year
  Sex: Female

DRUGS (1)
  1. GADAVIST [Suspect]
     Active Substance: GADOBUTROL
     Indication: NUCLEAR MAGNETIC RESONANCE IMAGING BRAIN
     Dosage: 7.5 ML, ONCE
     Route: 042
     Dates: start: 20160512, end: 20160512

REACTIONS (4)
  - Feeling abnormal [None]
  - Urticaria [None]
  - Throat tightness [None]
  - Nasal congestion [None]

NARRATIVE: CASE EVENT DATE: 20160512
